FAERS Safety Report 7529622-6 (Version None)
Quarter: 2011Q2

REPORT INFORMATION
  Report Type: 
  Country: None (occurrence: None)
  Receive Date: 20110607
  Receipt Date: 20090922
  Transmission Date: 20111010
  Serious: Yes (Hospitalization)
  Sender: FDA-Public Use
  Company Number: A0808935A

PATIENT
  Age: 66 Year
  Sex: Female

DRUGS (6)
  1. ENALAPRIL MALEATE [Concomitant]
  2. GLUCOTROL [Concomitant]
  3. AVANDIA [Suspect]
     Dosage: 4MG TWICE PER DAY
     Route: 048
     Dates: start: 20040101, end: 20070401
  4. LEVOXYL [Concomitant]
  5. GLIPIZIDE [Concomitant]
  6. LIPITOR [Concomitant]

REACTIONS (3)
  - CARDIAC FAILURE CONGESTIVE [None]
  - ANGINA UNSTABLE [None]
  - CORONARY ARTERY DISEASE [None]
